FAERS Safety Report 25937323 (Version 2)
Quarter: 2025Q4

REPORT INFORMATION
  Report Type: Spontaneous
  Country: JP (occurrence: JP)
  Receive Date: 20251018
  Receipt Date: 20251221
  Transmission Date: 20260118
  Serious: Yes (Death, Other)
  Sender: UNITED THERAPEUTICS
  Company Number: JP-UNITED THERAPEUTICS-UNT-2025-035668

PATIENT
  Age: 78 Year
  Sex: Male

DRUGS (1)
  1. TREPROSTINIL [Suspect]
     Active Substance: TREPROSTINIL
     Indication: Pulmonary hypertension
     Dosage: UNK
     Dates: start: 20250911, end: 20251010

REACTIONS (2)
  - Combined pulmonary fibrosis and emphysema [Fatal]
  - Condition aggravated [Fatal]

NARRATIVE: CASE EVENT DATE: 20251010
